FAERS Safety Report 14666595 (Version 5)
Quarter: 2018Q2

REPORT INFORMATION
  Report Type: Report from Study
  Country: US (occurrence: US)
  Receive Date: 20180322
  Receipt Date: 20180615
  Transmission Date: 20180711
  Serious: Yes (Death, Hospitalization)
  Sender: FDA-Public Use
  Company Number: US-ASTRAZENECA-2018SE33370

PATIENT
  Age: 22992 Day
  Sex: Female

DRUGS (7)
  1. XANAX [Concomitant]
     Active Substance: ALPRAZOLAM
     Indication: CONSTIPATION
     Route: 048
     Dates: start: 20180314
  2. DURVALUMAB. [Suspect]
     Active Substance: DURVALUMAB
     Indication: SMALL CELL LUNG CANCER
     Route: 042
     Dates: start: 20180228, end: 20180228
  3. CARBOPLATIN. [Suspect]
     Active Substance: CARBOPLATIN
     Indication: SMALL CELL LUNG CANCER
     Dosage: 574.00 AUC
     Route: 065
     Dates: start: 20180228, end: 20180228
  4. ETOPOSIDE. [Suspect]
     Active Substance: ETOPOSIDE
     Indication: SMALL CELL LUNG CANCER
     Route: 065
     Dates: start: 20180228, end: 20180228
  5. OXYCODONE [Concomitant]
     Active Substance: OXYCODONE
     Indication: CONSTIPATION
     Route: 048
     Dates: start: 20180226, end: 20180306
  6. SYNTHROID [Concomitant]
     Active Substance: LEVOTHYROXINE SODIUM
     Indication: CONSTIPATION
     Dosage: 100.0UG AS REQUIRED
     Route: 048
     Dates: start: 20180316
  7. LASIX [Concomitant]
     Active Substance: FUROSEMIDE
     Indication: CONSTIPATION
     Route: 042
     Dates: start: 20180316

REACTIONS (1)
  - Febrile neutropenia [Not Recovered/Not Resolved]

NARRATIVE: CASE EVENT DATE: 20180314
